FAERS Safety Report 9526962 (Version 2)
Quarter: 2014Q1

REPORT INFORMATION
  Report Type: Spontaneous
  Country: FR (occurrence: FR)
  Receive Date: 20130916
  Receipt Date: 20140121
  Transmission Date: 20141002
  Serious: Yes (Hospitalization)
  Sender: FDA-Public Use
  Company Number: FR-ROCHE-1273084

PATIENT
  Age: 65 Year
  Sex: Male

DRUGS (8)
  1. MABTHERA [Suspect]
     Indication: NON-HODGKIN^S LYMPHOMA
     Dosage: SINGLE INTAKE
     Route: 042
     Dates: start: 20130805, end: 20130805
  2. MABTHERA [Suspect]
     Route: 042
     Dates: start: 20130913
  3. CISPLATIN [Suspect]
     Indication: NON-HODGKIN^S LYMPHOMA
     Dosage: SINGLE INTAKE
     Route: 042
     Dates: start: 20130805, end: 20130805
  4. CYTARABINE [Suspect]
     Indication: NON-HODGKIN^S LYMPHOMA
     Route: 042
     Dates: start: 20130806, end: 20130806
  5. CYTARABINE [Suspect]
     Route: 042
     Dates: start: 20130914
  6. DECTANCYL [Suspect]
     Indication: NON-HODGKIN^S LYMPHOMA
     Dosage: SINGLE INTAKE
     Route: 048
     Dates: start: 20130806, end: 20130806
  7. DEXAMETHASONE [Concomitant]
     Dosage: PER OS
     Route: 065
     Dates: start: 20130913, end: 20130916
  8. OXALIPLATIN [Concomitant]
     Route: 065
     Dates: start: 20130913

REACTIONS (1)
  - Renal failure acute [Recovered/Resolved]
